FAERS Safety Report 24902722 (Version 2)
Quarter: 2025Q2

REPORT INFORMATION
  Report Type: Report from Study
  Country: GB (occurrence: GB)
  Receive Date: 20250130
  Receipt Date: 20250415
  Transmission Date: 20250716
  Serious: Yes (Hospitalization)
  Sender: JOHNSON AND JOHNSON
  Company Number: GB-JNJFOC-20250169045

PATIENT
  Sex: Female
  Weight: 97.5 kg

DRUGS (28)
  1. TREMFYA [Suspect]
     Active Substance: GUSELKUMAB
     Indication: Psoriasis
     Route: 065
     Dates: start: 20210508, end: 20221209
  2. TREMFYA [Suspect]
     Active Substance: GUSELKUMAB
     Route: 065
     Dates: start: 20230324, end: 20240416
  3. TREMFYA [Suspect]
     Active Substance: GUSELKUMAB
     Route: 065
     Dates: start: 20241217
  4. VENTOLIN [Concomitant]
     Active Substance: ALBUTEROL SULFATE
     Dates: start: 19820715
  5. AMITRIPTYLINE [Concomitant]
     Active Substance: AMITRIPTYLINE
     Dates: start: 20141210, end: 20240816
  6. CETRABEN EMOLLIENT BATH ADDITIVE [Concomitant]
     Dates: start: 20160701
  7. EXOREX [Concomitant]
     Active Substance: COAL TAR
     Dates: start: 20160701
  8. SERETIDE [Concomitant]
     Active Substance: FLUTICASONE PROPIONATE\SALMETEROL XINAFOATE
     Dates: start: 20160706, end: 20240418
  9. LEFLUNOMIDE [Concomitant]
     Active Substance: LEFLUNOMIDE
     Dates: start: 20161103, end: 20240816
  10. BALNEUM [GLYCINE MAX SEED OIL] [Concomitant]
     Dates: start: 20190502
  11. BETAMETHASONE DIPROPIONATE\CALCIPOTRIENE MONOHYDRATE [Concomitant]
     Active Substance: BETAMETHASONE DIPROPIONATE\CALCIPOTRIENE MONOHYDRATE
     Dates: start: 20190802
  12. ALPHOSYL [COAL TAR] [Concomitant]
     Dates: start: 20191025
  13. SEBCO [Concomitant]
     Dates: start: 20191025
  14. ACETAMINOPHEN [Concomitant]
     Active Substance: ACETAMINOPHEN
     Dates: start: 20191212
  15. SERTRALINE [Concomitant]
     Active Substance: SERTRALINE HYDROCHLORIDE
     Dates: start: 20220929
  16. FERROUS FUMARATE [Concomitant]
     Active Substance: FERROUS FUMARATE
     Dates: start: 20230707
  17. URSODIOL [Concomitant]
     Active Substance: URSODIOL
  18. DALTEPARIN SODIUM [Concomitant]
     Active Substance: DALTEPARIN SODIUM
     Dates: start: 20240222, end: 20240227
  19. IPRATROPIUM [Concomitant]
     Active Substance: IPRATROPIUM
     Dates: start: 20240222, end: 20240226
  20. AMOXICILLIN [Concomitant]
     Active Substance: AMOXICILLIN
     Dates: start: 20240222, end: 20240228
  21. CLARITHROMYCIN [Concomitant]
     Active Substance: CLARITHROMYCIN
     Dates: start: 20240222, end: 20240227
  22. PREDNISOLONE ACETATE [Concomitant]
     Active Substance: PREDNISOLONE ACETATE
     Dates: start: 20240222, end: 20240226
  23. MORPHINE SULFATE [Concomitant]
     Active Substance: MORPHINE SULFATE
     Dates: start: 20240223, end: 20240228
  24. OXYCODONE [Concomitant]
     Active Substance: OXYCODONE
     Dates: start: 20240223
  25. BECLOMETHASONE\FORMOTEROL [Concomitant]
     Active Substance: BECLOMETHASONE\FORMOTEROL
     Dates: start: 20240418
  26. MIDAZOLAM [Concomitant]
     Active Substance: MIDAZOLAM
     Dates: start: 20240521, end: 20240521
  27. NITROUS OXIDE\OXYGEN [Concomitant]
     Active Substance: NITROUS OXIDE\OXYGEN
     Dates: start: 20240521, end: 20240521
  28. BUTYLSCOPOLAMINE BROMIDE [Concomitant]
     Active Substance: BUTYLSCOPOLAMINE BROMIDE
     Dates: start: 20241024

REACTIONS (1)
  - Pneumonia [Unknown]

NARRATIVE: CASE EVENT DATE: 20240222
